FAERS Safety Report 21301274 (Version 2)
Quarter: 2022Q4

REPORT INFORMATION
  Report Type: Spontaneous
  Country: US (occurrence: US)
  Receive Date: 20220907
  Receipt Date: 20221227
  Transmission Date: 20230112
  Serious: Yes (Hospitalization, Other)
  Sender: FDA-Public Use
  Company Number: US-BRISTOL-MYERS SQUIBB COMPANY-2022-099265

PATIENT
  Age: 83 Year
  Sex: Male

DRUGS (2)
  1. POMALYST [Suspect]
     Active Substance: POMALIDOMIDE
     Indication: Plasma cell myeloma
     Dosage: EVERY DAY FOR 21 DAYS FOLLOWED BY A 7 DAY REST PERIOD
     Route: 048
     Dates: start: 20191202
  2. POMALYST [Suspect]
     Active Substance: POMALIDOMIDE
     Dosage: EVERY DAY FOR 21 DAYS FOLLOWED BY A 7 DAY REST PERIOD
     Route: 048
     Dates: start: 20220801

REACTIONS (1)
  - Seizure [Recovered/Resolved]

NARRATIVE: CASE EVENT DATE: 20220801
